FAERS Safety Report 21133789 (Version 1)
Quarter: 2022Q3

REPORT INFORMATION
  Report Type: Spontaneous
  Country: US (occurrence: None)
  Receive Date: 20220726
  Receipt Date: 20220726
  Transmission Date: 20221026
  Serious: Yes (Hospitalization)
  Sender: FDA-Public Use
  Company Number: None

PATIENT
  Age: 58 Year
  Sex: Female
  Weight: 91.17 kg

DRUGS (11)
  1. IBRANCE [Suspect]
     Active Substance: PALBOCICLIB
     Indication: Breast cancer female
     Dosage: OTHER FREQUENCY :3 WEEKS ON, 1 WEEK PFF?
     Route: 048
  2. ASPIRIN [Concomitant]
     Active Substance: ASPIRIN
  3. AMLODIPINE BESYLATE [Concomitant]
     Active Substance: AMLODIPINE BESYLATE
  4. Black seed vitamin [Concomitant]
  5. COENZYME Q10 [Concomitant]
     Active Substance: DIETARY SUPPLEMENT\UBIDECARENONE
  6. EXEMESTANE [Concomitant]
     Active Substance: EXEMESTANE
  7. GLIPIZIDE [Concomitant]
     Active Substance: GLIPIZIDE
  8. MAGNESIUM [Concomitant]
     Active Substance: MAGNESIUM
  9. OXYCODONE HYDROCHLORIDE [Concomitant]
     Active Substance: OXYCODONE HYDROCHLORIDE
  10. VITAMIN C [Concomitant]
     Active Substance: ASCORBIC ACID
  11. VITAMIN D3 [Concomitant]
     Active Substance: CHOLECALCIFEROL

REACTIONS (7)
  - Epistaxis [None]
  - Haemoptysis [None]
  - Influenza [None]
  - Infection [None]
  - Therapy interrupted [None]
  - White blood cell count decreased [None]
  - Red blood cell count decreased [None]
